FAERS Safety Report 4439212-X (Version None)
Quarter: 2004Q3

REPORT INFORMATION
  Report Type: 
  Country: None (occurrence: None)
  Receive Date: 20040831
  Receipt Date: 20040817
  Transmission Date: 20050211
  Serious: Yes (Hospitalization)
  Sender: FDA-Public Use
  Company Number: 203172

PATIENT
  Age: 57 Year
  Sex: Female

DRUGS (2)
  1. AVONEX [Suspect]
     Indication: MULTIPLE SCLEROSIS
     Dosage: 30 MCG QW IM
     Route: 030
     Dates: start: 20020924
  2. XANAX [Concomitant]

REACTIONS (8)
  - ANAEMIA [None]
  - ASTHENIA [None]
  - FALL [None]
  - GASTRIC ULCER [None]
  - HAEMORRHAGE [None]
  - KIDNEY INFECTION [None]
  - PAIN [None]
  - PNEUMONIA [None]
